FAERS Safety Report 10266743 (Version 1)
Quarter: 2014Q2

REPORT INFORMATION
  Report Type: Spontaneous
  Country: FR (occurrence: FR)
  Receive Date: 20140630
  Receipt Date: 20140630
  Transmission Date: 20141212
  Serious: Yes (Death, Other)
  Sender: FDA-Public Use
  Company Number: FR-ROCHE-1424175

PATIENT
  Age: 59 Year
  Sex: Male

DRUGS (5)
  1. RITUXIMAB [Suspect]
     Indication: MANTLE CELL LYMPHOMA
     Route: 065
  2. DEXAMETHASONE [Suspect]
     Indication: MANTLE CELL LYMPHOMA
     Route: 065
  3. CYTARABINE [Suspect]
     Indication: MANTLE CELL LYMPHOMA
     Route: 065
  4. METHOTREXATE [Suspect]
     Indication: MANTLE CELL LYMPHOMA
     Route: 037
  5. CISPLATIN [Suspect]
     Indication: MANTLE CELL LYMPHOMA
     Route: 065

REACTIONS (2)
  - Histiocytosis haematophagic [Fatal]
  - Septic shock [Unknown]
